FAERS Safety Report 8229005-X (Version None)
Quarter: 2012Q1

REPORT INFORMATION
  Report Type: 
  Country: None (occurrence: None)
  Receive Date: 20120322
  Receipt Date: 20120314
  Transmission Date: 20120608
  Serious: Yes (Other)
  Sender: FDA-Public Use
  Company Number: US-PFIZER INC-2012068237

PATIENT
  Age: 52 Year
  Sex: Female
  Weight: 61 kg

DRUGS (1)
  1. LYRICA [Suspect]
     Indication: PAIN
     Dosage: 50 MG, 4X/DAY
     Route: 048
     Dates: start: 20100101, end: 20120204

REACTIONS (3)
  - TREMOR [None]
  - VISION BLURRED [None]
  - HYPOGLYCAEMIA [None]
